FAERS Safety Report 23336853 (Version 2)
Quarter: 2024Q1

REPORT INFORMATION
  Report Type: Spontaneous
  Country: JP (occurrence: JP)
  Receive Date: 20231226
  Receipt Date: 20240111
  Transmission Date: 20240410
  Serious: No
  Sender: FDA-Public Use
  Company Number: JP-MSD-M2023-55498

PATIENT
  Age: 6 Decade
  Sex: Female

DRUGS (1)
  1. LAGEVRIO [Suspect]
     Active Substance: MOLNUPIRAVIR
     Indication: COVID-19 treatment
     Dosage: 800 MILLIGRAM, BID
     Route: 048
     Dates: start: 202312, end: 202312

REACTIONS (2)
  - Psychotic disorder [Recovered/Resolved]
  - Refusal of treatment by patient [Unknown]

NARRATIVE: CASE EVENT DATE: 20231201
